FAERS Safety Report 8625412 (Version 3)
Quarter: 2012Q4

REPORT INFORMATION
  Report Type: 
  Country: US (occurrence: US)
  Receive Date: 20120620
  Receipt Date: 20121108
  Transmission Date: 20130627
  Serious: No
  Sender: FDA-Public Use
  Company Number: US-PFIZER INC-2012143597

PATIENT
  Age: 70 Year
  Sex: Female
  Weight: 72.56 kg

DRUGS (8)
  1. LYRICA [Suspect]
     Indication: NERVOUS SYSTEM DISORDER
     Dosage: UNK
     Route: 048
     Dates: start: 20100324
  2. LYRICA [Suspect]
     Dosage: 150 mg, Daily
     Route: 048
  3. LYRICA [Suspect]
     Dosage: UNK
     Dates: end: 20120611
  4. LYRICA [Suspect]
     Dosage: 150 mg, 2x/day
     Dates: start: 20120614
  5. AMLODIPINE/BENAZEPRIL [Concomitant]
     Indication: BLOOD PRESSURE HIGH
     Dosage: 5/10 mg Daily
  6. WELCHOL [Concomitant]
     Dosage: 1250 mg, 3x/day
     Route: 048
  7. MELOXICAM [Concomitant]
     Indication: ARTHRITIS
     Dosage: 15 mg, Daily
  8. AMITRIPTYLINE [Concomitant]
     Indication: ABDOMINAL PAIN
     Dosage: 10 mg, Daily

REACTIONS (11)
  - Malaise [Unknown]
  - Nausea [Unknown]
  - Abdominal pain upper [Unknown]
  - Pain [Unknown]
  - Feeling abnormal [Unknown]
  - Feeling cold [Unknown]
  - Feeling hot [Unknown]
  - Diarrhoea [Unknown]
  - Nervous system disorder [Unknown]
  - Withdrawal syndrome [Unknown]
  - Malaise [Unknown]
